FAERS Safety Report 6826124-7 (Version None)
Quarter: 2010Q3

REPORT INFORMATION
  Report Type: 
  Country: None (occurrence: None)
  Receive Date: 20100709
  Receipt Date: 20100628
  Transmission Date: 20110219
  Serious: Yes (Other)
  Sender: FDA-Public Use
  Company Number: US-JNJFOC-20100406549

PATIENT
  Sex: Female
  Weight: 63.5 kg

DRUGS (11)
  1. REMICADE [Suspect]
     Indication: RHEUMATOID ARTHRITIS
     Route: 042
  2. REMICADE [Suspect]
     Dosage: FIRST DOSE
     Route: 042
  3. PLAVIX [Concomitant]
     Indication: ANTICOAGULANT THERAPY
  4. RAMIPRIL [Concomitant]
     Indication: MYOCARDIAL INFARCTION
  5. METOPROLOL [Concomitant]
     Indication: MYOCARDIAL INFARCTION
  6. ISOSORBID [Concomitant]
     Indication: MYOCARDIAL INFARCTION
  7. FOLIC ACID [Concomitant]
     Indication: RHEUMATOID ARTHRITIS
  8. METHOTREXATE [Concomitant]
     Indication: RHEUMATOID ARTHRITIS
     Dosage: 2.5-5MG WEEKLY
  9. ASPIRIN [Concomitant]
     Indication: RHEUMATOID ARTHRITIS
  10. LIPITOR [Concomitant]
     Indication: ARTERIAL OCCLUSIVE DISEASE
  11. PREDNISONE [Concomitant]

REACTIONS (2)
  - CORONARY ARTERY OCCLUSION [None]
  - MYOCARDIAL INFARCTION [None]
